FAERS Safety Report 5228516-9 (Version None)
Quarter: 2007Q1

REPORT INFORMATION
  Report Type: 
  Country: None (occurrence: None)
  Receive Date: 20070131
  Receipt Date: 20070131
  Transmission Date: 20070707
  Serious: Yes (Other)
  Sender: FDA-Public Use
  Company Number: None

PATIENT
  Age: 63 Year
  Sex: Female
  Weight: 61 kg

DRUGS (16)
  1. LYRICA [Suspect]
     Indication: NEURALGIA
     Dosage: 25 MG ONCE PO
     Route: 048
     Dates: start: 20060906
  2. ASPIRIN [Concomitant]
  3. LORAZEPAM [Concomitant]
  4. FAMOTIDINE [Concomitant]
  5. ZOLPIDEM TARTRATE [Concomitant]
  6. DOCUSATE SODIUM [Concomitant]
  7. LIDOCAINE [Concomitant]
  8. SENOKOT [Concomitant]
  9. MORPHINE [Concomitant]
  10. BUSPIRONE HCL [Concomitant]
  11. DOXEPIN HCL [Concomitant]
  12. MUCOMYST [Concomitant]
  13. LEPIRUDIN [Concomitant]
  14. WARFARIN SODIUM [Concomitant]
  15. ALBUTEROL [Concomitant]
  16. IPRATROPIUM BROMIDE [Concomitant]

REACTIONS (1)
  - URTICARIA [None]
